FAERS Safety Report 18212420 (Version 1)
Quarter: 2020Q3

REPORT INFORMATION
  Report Type: Spontaneous
  Country: IT (occurrence: IT)
  Receive Date: 20200831
  Receipt Date: 20200831
  Transmission Date: 20201103
  Serious: Yes (Other)
  Sender: FDA-Public Use
  Company Number: IT-PFIZER INC-2020334590

PATIENT
  Age: 57 Year
  Sex: Female

DRUGS (5)
  1. ALPRAZOLAM. [Suspect]
     Active Substance: ALPRAZOLAM
     Dosage: 10 MG TOTAL
     Route: 048
     Dates: start: 20200804, end: 20200804
  2. DIAZEPAM. [Suspect]
     Active Substance: DIAZEPAM
     Dosage: 100 MG TOTAL
     Route: 048
  3. ESCITALOPRAM [Suspect]
     Active Substance: ESCITALOPRAM OXALATE
     Dosage: 400 MG TOTAL
     Route: 048
     Dates: start: 20200804, end: 20200804
  4. ALPRAZOLAM. [Suspect]
     Active Substance: ALPRAZOLAM
     Dosage: 15 MG TOTAL
     Route: 048
     Dates: start: 20200804, end: 20200804
  5. ZOLPIDEM TARTRATE. [Suspect]
     Active Substance: ZOLPIDEM TARTRATE
     Dosage: 150 MG TOTAL
     Route: 048
     Dates: start: 20200804, end: 20200804

REACTIONS (5)
  - Sopor [Recovering/Resolving]
  - Rhabdomyolysis [Recovering/Resolving]
  - Drug screen positive [Recovering/Resolving]
  - Immobilisation prolonged [Recovering/Resolving]
  - Substance abuse [Recovering/Resolving]

NARRATIVE: CASE EVENT DATE: 20200804
